FAERS Safety Report 17222582 (Version 2)
Quarter: 2020Q1

REPORT INFORMATION
  Report Type: Spontaneous
  Country: US (occurrence: US)
  Receive Date: 20200102
  Receipt Date: 20200303
  Transmission Date: 20200409
  Serious: No
  Sender: FDA-Public Use
  Company Number: US-CELGENEUS-USA-20191210374

PATIENT
  Age: 72 Year
  Sex: Female

DRUGS (4)
  1. DESOWEN [Concomitant]
     Active Substance: DESONIDE
     Indication: PSORIASIS
     Dosage: APPLY ON FOREHEAD
     Route: 061
     Dates: start: 20180307
  2. OTEZLA [Suspect]
     Active Substance: APREMILAST
     Dosage: 60 MILLIGRAM
     Route: 048
     Dates: start: 201908
  3. OTEZLA [Suspect]
     Active Substance: APREMILAST
     Indication: PSORIASIS
     Dosage: STARTER PACK
     Route: 048
     Dates: start: 20190805
  4. OTEZLA [Suspect]
     Active Substance: APREMILAST
     Dosage: 30 MILLIGRAM
     Route: 048
     Dates: start: 20190816, end: 20190930

REACTIONS (5)
  - Nausea [Unknown]
  - Hyperkalaemia [Unknown]
  - Hypermagnesaemia [Unknown]
  - Tremor [Recovered/Resolved]
  - Dyspepsia [Recovered/Resolved]

NARRATIVE: CASE EVENT DATE: 2019
